FAERS Safety Report 4661326-X (Version None)
Quarter: 2005Q2

REPORT INFORMATION
  Report Type: 
  Country: None (occurrence: None)
  Receive Date: 20050511
  Receipt Date: 20050429
  Transmission Date: 20051028
  Serious: Yes (Hospitalization)
  Sender: FDA-Public Use
  Company Number: 05P-167-0299606-00

PATIENT
  Age: 42 Year
  Sex: Male
  Weight: 86 kg

DRUGS (5)
  1. HUMIRA [Suspect]
     Indication: RHEUMATOID ARTHRITIS
     Dosage: 40 MG, 1 IN 2 WK, SUBCUTANEOUS
     Route: 058
     Dates: start: 20030408
  2. LEFLUNOMIDE [Concomitant]
  3. PREDNISOLONE [Concomitant]
  4. NAPROXEN [Concomitant]
  5. CALCIUM CARBONATE [Concomitant]

REACTIONS (2)
  - PULMONARY EMBOLISM [None]
  - VASCULITIS [None]
